FAERS Safety Report 10244373 (Version 1)
Quarter: 2014Q2

REPORT INFORMATION
  Report Type: Spontaneous
  Country: US (occurrence: US)
  Receive Date: 20140618
  Receipt Date: 20140618
  Transmission Date: 20141212
  Serious: Yes (Other)
  Sender: FDA-Public Use
  Company Number: US-ASTRAZENECA-2014SE41132

PATIENT
  Age: 65 Year
  Sex: Male
  Weight: 73.5 kg

DRUGS (9)
  1. CRESTOR [Suspect]
     Indication: BLOOD CHOLESTEROL ABNORMAL
     Route: 048
     Dates: start: 2008
  2. CRESTOR [Suspect]
     Indication: ARTERIOSCLEROSIS
     Route: 048
     Dates: start: 2008
  3. CRESTOR [Suspect]
     Indication: PERIPHERAL ARTERIAL OCCLUSIVE DISEASE
     Route: 048
     Dates: start: 2008
  4. SYMBICORT [Suspect]
     Indication: DRUG HYPERSENSITIVITY
     Dosage: 160/4.5 UG 2 PUFFS TWICE DAILY
     Route: 055
     Dates: start: 201405
  5. TRAMADOL [Concomitant]
     Indication: BACK DISORDER
     Route: 048
  6. PROAIR HFA [Concomitant]
     Indication: INHALATION THERAPY
     Route: 055
  7. ASPIRIN [Concomitant]
     Indication: PERIPHERAL ARTERIAL OCCLUSIVE DISEASE
     Route: 048
  8. ATIVAN [Concomitant]
     Indication: ANXIETY
     Route: 048
  9. PREDNISONE [Concomitant]
     Indication: URTICARIA
     Route: 048

REACTIONS (10)
  - Peripheral arterial occlusive disease [Unknown]
  - Scoliosis [Unknown]
  - Emphysema [Unknown]
  - Dyspnoea [Unknown]
  - Anxiety [Unknown]
  - Movement disorder [Unknown]
  - Cough [Unknown]
  - Wheezing [Unknown]
  - Off label use [Unknown]
  - Intentional product misuse [Unknown]
